FAERS Safety Report 9734571 (Version 1)
Quarter: 2013Q4

REPORT INFORMATION
  Report Type: Report from Study
  Country: US (occurrence: US)
  Receive Date: 20131206
  Receipt Date: 20131206
  Transmission Date: 20140711
  Serious: Yes (Hospitalization)
  Sender: FDA-Public Use
  Company Number: US-ROCHE-1309445

PATIENT
  Sex: 0

DRUGS (101)
  1. PEGFILGRASTIM [Suspect]
     Indication: FEBRILE NEUTROPENIA
     Route: 065
  2. RITUXIMAB [Suspect]
     Indication: HODGKIN^S DISEASE
     Route: 065
  3. RITUXIMAB [Suspect]
     Indication: LUNG NEOPLASM MALIGNANT
  4. RITUXIMAB [Suspect]
     Indication: BREAST CANCER
  5. RITUXIMAB [Suspect]
     Indication: NON-HODGKIN^S LYMPHOMA
  6. CYCLOPHOSPHAMIDE [Suspect]
     Indication: HODGKIN^S DISEASE
     Route: 065
  7. CYCLOPHOSPHAMIDE [Suspect]
     Indication: NON-HODGKIN^S LYMPHOMA
  8. CYCLOPHOSPHAMIDE [Suspect]
     Indication: BREAST CANCER
  9. CYCLOPHOSPHAMIDE [Suspect]
     Indication: LUNG NEOPLASM MALIGNANT
  10. DOXORUBICIN [Suspect]
     Indication: HODGKIN^S DISEASE
     Route: 065
  11. DOXORUBICIN [Suspect]
     Indication: LUNG NEOPLASM MALIGNANT
  12. DOXORUBICIN [Suspect]
     Indication: BREAST CANCER
  13. DOXORUBICIN [Suspect]
     Indication: NON-HODGKIN^S LYMPHOMA
  14. VINCRISTINE [Suspect]
     Indication: HODGKIN^S DISEASE
     Route: 065
  15. VINCRISTINE [Suspect]
     Indication: NON-HODGKIN^S LYMPHOMA
  16. VINCRISTINE [Suspect]
     Indication: BREAST CANCER
  17. VINCRISTINE [Suspect]
     Indication: LUNG NEOPLASM MALIGNANT
  18. PREDNISONE [Suspect]
     Indication: HODGKIN^S DISEASE
     Route: 065
  19. PREDNISONE [Suspect]
     Indication: LUNG NEOPLASM MALIGNANT
  20. PREDNISONE [Suspect]
     Indication: BREAST CANCER
  21. PREDNISONE [Suspect]
     Indication: NON-HODGKIN^S LYMPHOMA
  22. BLEOMYCIN [Suspect]
     Indication: HODGKIN^S DISEASE
     Route: 065
  23. BLEOMYCIN [Suspect]
     Indication: NON-HODGKIN^S LYMPHOMA
  24. BLEOMYCIN [Suspect]
     Indication: BREAST CANCER
  25. BLEOMYCIN [Suspect]
     Indication: LUNG NEOPLASM MALIGNANT
  26. VINBLASTINE [Suspect]
     Indication: HODGKIN^S DISEASE
     Route: 065
  27. VINBLASTINE [Suspect]
     Indication: LUNG NEOPLASM MALIGNANT
  28. VINBLASTINE [Suspect]
     Indication: BREAST CANCER
  29. VINBLASTINE [Suspect]
     Indication: NON-HODGKIN^S LYMPHOMA
  30. TRASTUZUMAB [Suspect]
     Indication: HODGKIN^S DISEASE
     Route: 065
  31. TRASTUZUMAB [Suspect]
     Indication: NON-HODGKIN^S LYMPHOMA
  32. TRASTUZUMAB [Suspect]
     Indication: BREAST CANCER
  33. TRASTUZUMAB [Suspect]
     Indication: LUNG NEOPLASM MALIGNANT
  34. DOCETAXEL [Suspect]
     Indication: HODGKIN^S DISEASE
     Route: 065
  35. DOCETAXEL [Suspect]
     Indication: LUNG NEOPLASM MALIGNANT
  36. DOCETAXEL [Suspect]
     Indication: BREAST CANCER
  37. DOCETAXEL [Suspect]
     Indication: NON-HODGKIN^S LYMPHOMA
  38. CARBOPLATIN [Suspect]
     Indication: HODGKIN^S DISEASE
     Route: 065
  39. CARBOPLATIN [Suspect]
     Indication: NON-HODGKIN^S LYMPHOMA
  40. CARBOPLATIN [Suspect]
     Indication: BREAST CANCER
  41. CARBOPLATIN [Suspect]
     Indication: LUNG NEOPLASM MALIGNANT
  42. BENDAMUSTINE [Suspect]
     Indication: HODGKIN^S DISEASE
     Route: 065
  43. BENDAMUSTINE [Suspect]
     Indication: LUNG NEOPLASM MALIGNANT
  44. BENDAMUSTINE [Suspect]
     Indication: BREAST CANCER
  45. BENDAMUSTINE [Suspect]
     Indication: NON-HODGKIN^S LYMPHOMA
  46. PEMETREXED [Suspect]
     Indication: HODGKIN^S DISEASE
     Route: 065
  47. PEMETREXED [Suspect]
     Indication: NON-HODGKIN^S LYMPHOMA
  48. PEMETREXED [Suspect]
     Indication: BREAST CANCER
  49. PEMETREXED [Suspect]
     Indication: LUNG NEOPLASM MALIGNANT
  50. MECHLORETHAMINE [Suspect]
     Indication: HODGKIN^S DISEASE
     Route: 065
  51. MECHLORETHAMINE [Suspect]
     Indication: BREAST CANCER
  52. MECHLORETHAMINE [Suspect]
     Indication: LUNG NEOPLASM MALIGNANT
  53. MECHLORETHAMINE [Suspect]
     Indication: NON-HODGKIN^S LYMPHOMA
  54. PROCARBAZINE [Suspect]
     Indication: HODGKIN^S DISEASE
     Route: 065
  55. PROCARBAZINE [Suspect]
     Indication: NON-HODGKIN^S LYMPHOMA
  56. PROCARBAZINE [Suspect]
     Indication: LUNG NEOPLASM MALIGNANT
  57. PROCARBAZINE [Suspect]
     Indication: BREAST CANCER
  58. CISPLATIN [Suspect]
     Indication: HODGKIN^S DISEASE
     Route: 065
  59. CISPLATIN [Suspect]
     Indication: LUNG NEOPLASM MALIGNANT
  60. CISPLATIN [Suspect]
     Indication: BREAST CANCER
  61. CISPLATIN [Suspect]
     Indication: NON-HODGKIN^S LYMPHOMA
  62. GEMCITABINE [Suspect]
     Indication: HODGKIN^S DISEASE
     Route: 065
  63. GEMCITABINE [Suspect]
     Indication: NON-HODGKIN^S LYMPHOMA
  64. GEMCITABINE [Suspect]
     Indication: BREAST CANCER
  65. GEMCITABINE [Suspect]
     Indication: LUNG NEOPLASM MALIGNANT
  66. OXALIPLATIN [Suspect]
     Indication: HODGKIN^S DISEASE
     Route: 065
  67. OXALIPLATIN [Suspect]
     Indication: LUNG NEOPLASM MALIGNANT
  68. OXALIPLATIN [Suspect]
     Indication: BREAST CANCER
  69. OXALIPLATIN [Suspect]
     Indication: NON-HODGKIN^S LYMPHOMA
  70. MITOMYCIN [Suspect]
     Indication: HODGKIN^S DISEASE
     Route: 065
  71. MITOMYCIN [Suspect]
     Indication: NON-HODGKIN^S LYMPHOMA
  72. MITOMYCIN [Suspect]
     Indication: BREAST CANCER
  73. MITOMYCIN [Suspect]
     Indication: LUNG NEOPLASM MALIGNANT
  74. FLUOROURACIL [Suspect]
     Indication: HODGKIN^S DISEASE
     Route: 065
  75. FLUOROURACIL [Suspect]
     Indication: LUNG NEOPLASM MALIGNANT
  76. FLUOROURACIL [Suspect]
     Indication: BREAST CANCER
  77. FLUOROURACIL [Suspect]
     Indication: NON-HODGKIN^S LYMPHOMA
  78. VINORELBINE [Suspect]
     Indication: HODGKIN^S DISEASE
     Route: 065
  79. VINORELBINE [Suspect]
     Indication: NON-HODGKIN^S LYMPHOMA
  80. VINORELBINE [Suspect]
     Indication: BREAST CANCER
  81. VINORELBINE [Suspect]
     Indication: LUNG NEOPLASM MALIGNANT
  82. DACARBAZINE [Suspect]
     Indication: HODGKIN^S DISEASE
     Route: 065
  83. DACARBAZINE [Suspect]
     Indication: LUNG NEOPLASM MALIGNANT
  84. DACARBAZINE [Suspect]
     Indication: BREAST CANCER
  85. DACARBAZINE [Suspect]
     Indication: NON-HODGKIN^S LYMPHOMA
  86. PACLITAXEL [Suspect]
     Indication: HODGKIN^S DISEASE
     Route: 065
  87. PACLITAXEL [Suspect]
     Indication: NON-HODGKIN^S LYMPHOMA
  88. PACLITAXEL [Suspect]
     Indication: BREAST CANCER
  89. PACLITAXEL [Suspect]
     Indication: LUNG NEOPLASM MALIGNANT
  90. ETOPOSIDE [Suspect]
     Indication: HODGKIN^S DISEASE
     Route: 065
  91. ETOPOSIDE [Suspect]
     Indication: BREAST CANCER
  92. ETOPOSIDE [Suspect]
     Indication: LUNG NEOPLASM MALIGNANT
  93. ETOPOSIDE [Suspect]
     Indication: NON-HODGKIN^S LYMPHOMA
  94. FLUDARABINE [Suspect]
     Indication: HODGKIN^S DISEASE
     Route: 065
  95. FLUDARABINE [Suspect]
     Indication: NON-HODGKIN^S LYMPHOMA
  96. FLUDARABINE [Suspect]
     Indication: LUNG NEOPLASM MALIGNANT
  97. FLUDARABINE [Suspect]
     Indication: BREAST CANCER
  98. AZACITIDINE [Suspect]
     Indication: HODGKIN^S DISEASE
     Route: 065
  99. AZACITIDINE [Suspect]
     Indication: NON-HODGKIN^S LYMPHOMA
  100. AZACITIDINE [Suspect]
     Indication: BREAST CANCER
  101. AZACITIDINE [Suspect]
     Indication: LUNG NEOPLASM MALIGNANT

REACTIONS (5)
  - Febrile neutropenia [Unknown]
  - Musculoskeletal pain [Unknown]
  - Arthralgia [Unknown]
  - Rash [Unknown]
  - Drug ineffective [Unknown]
